FAERS Safety Report 6278930-8 (Version None)
Quarter: 2009Q3

REPORT INFORMATION
  Report Type: 
  Country: None (occurrence: None)
  Receive Date: 20090723
  Receipt Date: 20090714
  Transmission Date: 20100115
  Serious: Yes (Hospitalization, Other)
  Sender: FDA-Public Use
  Company Number: GB-RANBAXY-2007RR-07130

PATIENT
  Age: 29 Year
  Sex: Female

DRUGS (3)
  1. CODEINE SUL TAB [Suspect]
     Indication: INTENTIONAL DRUG MISUSE
  2. ACETAMINOPHEN [Suspect]
     Indication: INTENTIONAL DRUG MISUSE
     Dosage: 48 G, UNK
     Route: 048
  3. PAROXETINE HCL [Suspect]
     Indication: INTENTIONAL DRUG MISUSE

REACTIONS (3)
  - HEPATOTOXICITY [None]
  - INTERNATIONAL NORMALISED RATIO INCREASED [None]
  - MULTIPLE DRUG OVERDOSE INTENTIONAL [None]
